FAERS Safety Report 23284325 (Version 1)
Quarter: 2023Q4

REPORT INFORMATION
  Report Type: Report from Study
  Country: US (occurrence: US)
  Receive Date: 20231211
  Receipt Date: 20231211
  Transmission Date: 20240110
  Serious: Yes (Other)
  Sender: FDA-Public Use
  Company Number: US-MYLANLABS-2023M1130513

PATIENT
  Sex: Female

DRUGS (1)
  1. XANAX [Suspect]
     Active Substance: ALPRAZOLAM
     Indication: Product used for unknown indication
     Dosage: UNK
     Route: 065

REACTIONS (19)
  - Skin cancer [Unknown]
  - Spinal compression fracture [Unknown]
  - Chronic kidney disease [Unknown]
  - Arthralgia [Unknown]
  - Cervical dysplasia [Unknown]
  - Pulmonary mass [Unknown]
  - Back pain [Unknown]
  - Glucose tolerance impaired [Unknown]
  - Blood glucose increased [Unknown]
  - Hepatic steatosis [Unknown]
  - Intervertebral disc degeneration [Unknown]
  - Hypertension [Unknown]
  - Smear cervix abnormal [Unknown]
  - Gastritis [Unknown]
  - Panic disorder [Unknown]
  - Osteoporosis [Unknown]
  - Peripheral vascular disorder [Unknown]
  - Anxiety [Unknown]
  - Insomnia [Unknown]
